FAERS Safety Report 15281363 (Version 2)
Quarter: 2018Q3

REPORT INFORMATION
  Report Type: Spontaneous
  Country: US (occurrence: US)
  Receive Date: 20180815
  Receipt Date: 20180827
  Transmission Date: 20181010
  Serious: Yes (Other)
  Sender: FDA-Public Use
  Company Number: US-SA-2018SA224075

PATIENT
  Age: 58 Year
  Sex: Female

DRUGS (5)
  1. TAXOTERE [Suspect]
     Active Substance: DOCETAXEL
     Dosage: UNK
     Route: 042
     Dates: start: 20080108, end: 20080108
  2. DECADRON [DEXAMETHASONE] [Concomitant]
     Dosage: 1 MG
  3. TAXOTERE [Suspect]
     Active Substance: DOCETAXEL
     Indication: BREAST CANCER
     Dosage: 180 MG, UNK
     Route: 042
     Dates: start: 20070206, end: 20070206
  4. ALOXI [Concomitant]
     Active Substance: PALONOSETRON HYDROCHLORIDE
  5. ATIVAN [Concomitant]
     Active Substance: LORAZEPAM

REACTIONS (1)
  - Alopecia [Not Recovered/Not Resolved]
